FAERS Safety Report 6174217-2 (Version None)
Quarter: 2009Q2

REPORT INFORMATION
  Report Type: 
  Country: None (occurrence: None)
  Receive Date: 20090430
  Receipt Date: 20080526
  Transmission Date: 20091009
  Serious: No
  Sender: FDA-Public Use
  Company Number: US-ASTRAZENECA-2008UW05906

PATIENT
  Age: 75 Year
  Sex: Female
  Weight: 93.4 kg

DRUGS (8)
  1. NEXIUM [Suspect]
     Indication: ABDOMINAL DISCOMFORT
     Route: 048
  2. CELEBREX [Concomitant]
  3. ULTRAM [Concomitant]
  4. PREDNISONE [Concomitant]
  5. VALIUM [Concomitant]
  6. GLUCOPHAGE [Concomitant]
  7. HYDROCHLOROTHIAZIDE [Concomitant]
  8. METOPROLOL TARTRATE [Concomitant]

REACTIONS (2)
  - ABDOMINAL PAIN UPPER [None]
  - PRODUCT QUALITY ISSUE [None]
